FAERS Safety Report 6036412-2 (Version None)
Quarter: 2009Q1

REPORT INFORMATION
  Report Type: 
  Country: None (occurrence: None)
  Receive Date: 20090112
  Receipt Date: 20081229
  Transmission Date: 20090719
  Serious: Yes (Death)
  Sender: FDA-Public Use
  Company Number: MPS1-1000159

PATIENT
  Age: 16 Month
  Sex: Female
  Weight: 11.2 kg

DRUGS (1)
  1. ALDURAZYME [Suspect]
     Indication: MUCOPOLYSACCHARIDOSIS I
     Dosage: 0.58 MG/KG, 1X/W
     Dates: start: 20080717, end: 20081224

REACTIONS (7)
  - CARDIO-RESPIRATORY ARREST [None]
  - HEPATIC FUNCTION ABNORMAL [None]
  - OEDEMA [None]
  - RESPIRATORY DISTRESS [None]
  - STEM CELL TRANSPLANT [None]
  - TRANSPLANT REJECTION [None]
  - VENOOCCLUSIVE DISEASE [None]
